FAERS Safety Report 6236795-4 (Version None)
Quarter: 2009Q2

REPORT INFORMATION
  Report Type: 
  Country: None (occurrence: None)
  Receive Date: 20090617
  Receipt Date: 20080507
  Transmission Date: 20091009
  Serious: No
  Sender: FDA-Public Use
  Company Number: 275106

PATIENT
  Age: 68 Year
  Sex: Male

DRUGS (6)
  1. NOVOLOG [Suspect]
     Indication: INSULIN-REQUIRING TYPE 2 DIABETES MELLITUS
     Dosage: 10 IU, QD, SUBCUTANEOUS
     Route: 058
     Dates: start: 20080201, end: 20080401
  2. LEVEMIR [Suspect]
     Indication: INSULIN-REQUIRING TYPE 2 DIABETES MELLITUS
     Dosage: 82 IU, QD, SUBCUTANEOUS
     Route: 058
     Dates: start: 20080201, end: 20080301
  3. NOVOLIN N [Suspect]
     Indication: INSULIN-REQUIRING TYPE 2 DIABETES MELLITUS
     Dosage: SUBCUTANEOUS
     Route: 058
     Dates: start: 20080201
  4. NOVOLOG [Concomitant]
  5. LANTUS (INSULIN ANALOGUE) SUSPENSION FOR INJECTION [Concomitant]
  6. GLIPIZIDE [Concomitant]

REACTIONS (1)
  - BLOOD GLUCOSE INCREASED [None]
